FAERS Safety Report 6105871-9 (Version None)
Quarter: 2009Q1

REPORT INFORMATION
  Report Type: 
  Country: None (occurrence: None)
  Receive Date: 20090306
  Receipt Date: 20090303
  Transmission Date: 20090719
  Serious: Yes (Death)
  Sender: FDA-Public Use
  Company Number: VE-BRISTOL-MYERS SQUIBB COMPANY-14528848

PATIENT
  Age: 5 Month
  Sex: Male

DRUGS (1)
  1. AMOXICILLIN [Suspect]
     Indication: OTITIS MEDIA

REACTIONS (1)
  - SEPTIC SHOCK [None]
